FAERS Safety Report 26187314 (Version 1)
Quarter: 2025Q4

REPORT INFORMATION
  Report Type: Spontaneous
  Country: US (occurrence: None)
  Receive Date: 20251222
  Receipt Date: 20251222
  Transmission Date: 20260117
  Serious: Yes (Life-Threatening, Hospitalization)
  Sender: FDA-CTU
  Company Number: None

PATIENT
  Age: 45 Year
  Sex: Female
  Weight: 53.1 kg

DRUGS (5)
  1. AMOXICILLIN\CLAVULANATE POTASSIUM [Suspect]
     Active Substance: AMOXICILLIN\CLAVULANATE POTASSIUM
     Indication: Urinary tract infection
     Dosage: 1 TABLET EVERY 12 HOURS ORAL
     Route: 048
     Dates: start: 20251215, end: 20251215
  2. General multivitamin [Concomitant]
  3. DIETARY SUPPLEMENT [Concomitant]
     Active Substance: DIETARY SUPPLEMENT
  4. Calcium and vitamin d supplement [Concomitant]
  5. Biotin supplement [Concomitant]

REACTIONS (13)
  - Paraesthesia oral [None]
  - Paraesthesia oral [None]
  - Paraesthesia oral [None]
  - Paraesthesia [None]
  - Pruritus [None]
  - Paraesthesia [None]
  - Presyncope [None]
  - Chest discomfort [None]
  - Oropharyngeal discomfort [None]
  - Dysphagia [None]
  - Rash [None]
  - Urticaria [None]
  - Hypertension [None]

NARRATIVE: CASE EVENT DATE: 20251216
